FAERS Safety Report 23820533 (Version 3)
Quarter: 2025Q1

REPORT INFORMATION
  Report Type: Spontaneous
  Country: DK (occurrence: DK)
  Receive Date: 20240506
  Receipt Date: 20250312
  Transmission Date: 20250408
  Serious: Yes (Hospitalization, Other)
  Sender: AUROBINDO
  Company Number: DK-Accord-419381

PATIENT
  Age: 49 Year
  Sex: Male

DRUGS (7)
  1. VALGANCICLOVIR [Suspect]
     Active Substance: VALGANCICLOVIR
     Indication: Cytomegalovirus infection
     Dosage: 900 MILLIGRAM, EVERY OTHER DAY, BID
     Route: 048
  2. MYCOPHENOLATE MOFETIL [Suspect]
     Active Substance: MYCOPHENOLATE MOFETIL
     Indication: Cytomegalovirus infection
     Route: 065
  3. MYCOPHENOLATE MOFETIL [Suspect]
     Active Substance: MYCOPHENOLATE MOFETIL
     Indication: Immunosuppressant drug therapy
  4. PREDNISOLONE [Suspect]
     Active Substance: PREDNISOLONE
     Indication: Immunosuppressant drug therapy
     Route: 065
  5. PREDNISOLONE [Suspect]
     Active Substance: PREDNISOLONE
     Indication: Cytomegalovirus infection
  6. TACROLIMUS [Suspect]
     Active Substance: TACROLIMUS
     Indication: Immunosuppressant drug therapy
     Route: 065
  7. TACROLIMUS [Suspect]
     Active Substance: TACROLIMUS
     Indication: Cytomegalovirus infection

REACTIONS (7)
  - Erythema [Recovered/Resolved]
  - Erythema multiforme [Recovered/Resolved]
  - Rash [Recovered/Resolved]
  - Toxic epidermal necrolysis [Recovered/Resolved]
  - Cytomegalovirus infection [Recovered/Resolved]
  - Rash maculo-papular [Recovered/Resolved]
  - Off label use [Unknown]
